FAERS Safety Report 14066676 (Version 2)
Quarter: 2017Q4

REPORT INFORMATION
  Report Type: Report from Study
  Country: CZ (occurrence: CZ)
  Receive Date: 20171009
  Receipt Date: 20171108
  Transmission Date: 20180321
  Serious: Yes (Hospitalization, Disabling, Other)
  Sender: FDA-Public Use
  Company Number: PHHY2015CZ068482

PATIENT
  Sex: Female

DRUGS (6)
  1. FEMARA [Concomitant]
     Active Substance: LETROZOLE
     Indication: BREAST CANCER
     Dosage: 2.5 MG, QD
     Route: 048
     Dates: start: 20110401
  2. CALTRATE WITH VITAMIN D [Concomitant]
     Active Substance: CALCIUM CARBONATE\CHOLECALCIFEROL
     Indication: MULTIPLE SCLEROSIS
     Dosage: 1598 MG, QD
     Route: 048
     Dates: start: 20070425
  3. GILENYA [Suspect]
     Active Substance: FINGOLIMOD HYDROCHLORIDE
     Indication: MULTIPLE SCLEROSIS
     Dosage: 0.5 MG, UNK
     Route: 065
     Dates: start: 20130315, end: 20170824
  4. CURAM [Concomitant]
     Active Substance: AMOXICILLIN\CLAVULANATE POTASSIUM
     Indication: URINARY TRACT INFECTION
     Dosage: 625 MG, TID
     Route: 048
     Dates: start: 20131111, end: 20131120
  5. VIREGYT-K [Concomitant]
     Indication: MULTIPLE SCLEROSIS
     Dosage: 50 MG, BID
     Route: 048
     Dates: start: 20110202
  6. BETAHISTIN [Concomitant]
     Indication: MULTIPLE SCLEROSIS
     Dosage: 16 MG, TID
     Route: 048
     Dates: start: 20120925, end: 20161107

REACTIONS (4)
  - Breast cancer [Recovered/Resolved with Sequelae]
  - Lymphocyte count decreased [Unknown]
  - Multiple sclerosis relapse [Recovered/Resolved]
  - Hepatic enzyme increased [Recovered/Resolved]

NARRATIVE: CASE EVENT DATE: 20130412
